FAERS Safety Report 10913278 (Version 1)
Quarter: 2015Q1

REPORT INFORMATION
  Report Type: Spontaneous
  Country: US (occurrence: None)
  Receive Date: 20150311
  Receipt Date: 20150311
  Transmission Date: 20150721
  Serious: Yes (Congenital Anomaly)
  Sender: FDA-Public Use
  Company Number: None

PATIENT
  Age: 25 Year
  Sex: Female
  Weight: 92.08 kg

DRUGS (2)
  1. ZOFRAN [Suspect]
     Active Substance: ONDANSETRON HYDROCHLORIDE
     Indication: GASTROENTERITIS
     Dosage: INTO A VEIN?
     Dates: start: 20120301, end: 20120301
  2. ZOFRAN [Suspect]
     Active Substance: ONDANSETRON HYDROCHLORIDE
     Indication: DEHYDRATION
     Dosage: INTO A VEIN?
     Dates: start: 20120301, end: 20120301

REACTIONS (2)
  - Cleft lip and palate [None]
  - Exposure during pregnancy [None]

NARRATIVE: CASE EVENT DATE: 20120301
